FAERS Safety Report 6342604-5 (Version None)
Quarter: 2009Q3

REPORT INFORMATION
  Report Type: 
  Country: None (occurrence: None)
  Receive Date: 20090908
  Receipt Date: 20090901
  Transmission Date: 20100115
  Serious: Yes (Hospitalization)
  Sender: FDA-Public Use
  Company Number: SE-JNJFOC-20090900102

PATIENT
  Sex: Female

DRUGS (7)
  1. DURAGESIC-100 [Suspect]
     Route: 062
  2. DURAGESIC-100 [Suspect]
     Indication: PAIN
     Route: 062
  3. KETOGAN [Suspect]
     Indication: ARTHRITIS
     Route: 054
  4. MORPHINE [Suspect]
     Indication: ARTHRITIS
     Route: 048
  5. ARCOXIA [Suspect]
     Indication: ARTHRITIS
     Route: 048
  6. TROMBYL [Suspect]
     Indication: ATRIAL FIBRILLATION
     Route: 048
  7. MANY OTHER UNSPECIFIED MEDICATIONS [Concomitant]
     Route: 065

REACTIONS (2)
  - LETHARGY [None]
  - MELAENA [None]
